FAERS Safety Report 13260266 (Version 1)
Quarter: 2017Q1

REPORT INFORMATION
  Report Type: Report from Study
  Country: US (occurrence: US)
  Receive Date: 20170222
  Receipt Date: 20170222
  Transmission Date: 20170428
  Serious: Yes (Hospitalization)
  Sender: FDA-Public Use
  Company Number: US-ACADIA PHARMACEUTICALS INC.-ACA-2017-002262

PATIENT
  Sex: Male
  Weight: 81.27 kg

DRUGS (6)
  1. SINEMET [Concomitant]
     Active Substance: CARBIDOPA\LEVODOPA
     Indication: PARKINSON^S DISEASE
  2. NUPLAZID [Suspect]
     Active Substance: PIMAVANSERIN TARTRATE
     Indication: DELUSION
  3. NUPLAZID [Suspect]
     Active Substance: PIMAVANSERIN TARTRATE
     Indication: HALLUCINATION
  4. MIRAPEX [Concomitant]
     Active Substance: PRAMIPEXOLE DIHYDROCHLORIDE
     Indication: PARKINSON^S DISEASE
  5. NUPLAZID [Suspect]
     Active Substance: PIMAVANSERIN TARTRATE
     Indication: PARKINSON^S DISEASE PSYCHOSIS
     Dosage: 34 MG, QD
     Route: 048
     Dates: start: 20170126, end: 20170201
  6. COMTAN [Concomitant]
     Active Substance: ENTACAPONE
     Indication: PARKINSON^S DISEASE

REACTIONS (11)
  - Aggression [Recovering/Resolving]
  - Anxiety [Recovering/Resolving]
  - Delusion [Not Recovered/Not Resolved]
  - Mania [Recovering/Resolving]
  - Agitation [Recovering/Resolving]
  - Obsessive thoughts [Unknown]
  - Abnormal behaviour [Recovering/Resolving]
  - Stress [Unknown]
  - Hallucination [Unknown]
  - Parkinson^s disease [Recovering/Resolving]
  - Insomnia [Unknown]

NARRATIVE: CASE EVENT DATE: 2017
